FAERS Safety Report 5281323-3 (Version None)
Quarter: 2007Q1

REPORT INFORMATION
  Report Type: 
  Country: None (occurrence: None)
  Receive Date: 20061221
  Receipt Date: 20040614
  Transmission Date: 20070707
  Serious: No
  Sender: FDA-Public Use
  Company Number: 2004UW09927

PATIENT
  Age: 29 Year
  Sex: Female

DRUGS (5)
  1. EMLA [Suspect]
     Indication: LASER THERAPY
     Dates: start: 20040512, end: 20040512
  2. EFFEXOR [Concomitant]
  3. LAMICTAL [Concomitant]
  4. BUSPAR [Concomitant]
  5. RISPERDAL [Concomitant]

REACTIONS (3)
  - BURNING SENSATION [None]
  - SKIN HYPERPIGMENTATION [None]
  - SKIN SWELLING [None]
